FAERS Safety Report 25762122 (Version 1)
Quarter: 2025Q3

REPORT INFORMATION
  Report Type: Spontaneous
  Country: US (occurrence: US)
  Receive Date: 20250904
  Receipt Date: 20250904
  Transmission Date: 20251021
  Serious: No
  Sender: ARS PHARMACEUTICALS OPERATIONS, INC.
  Company Number: US-ARS PHARMACEUTICALS OPERATIONS, INC.-2025ARP00102

PATIENT

DRUGS (1)
  1. NEFFY [Suspect]
     Active Substance: EPINEPHRINE
     Route: 065

REACTIONS (2)
  - Facial pain [Unknown]
  - Head discomfort [Unknown]
